FAERS Safety Report 12234235 (Version 1)
Quarter: 2016Q2

REPORT INFORMATION
  Report Type: Spontaneous
  Country: US (occurrence: US)
  Receive Date: 20160404
  Receipt Date: 20160404
  Transmission Date: 20160815
  Serious: No
  Sender: FDA-Public Use
  Company Number: US-PFIZER INC-2016168897

PATIENT
  Age: 67 Year
  Sex: Female
  Weight: 64 kg

DRUGS (1)
  1. LYRICA [Suspect]
     Active Substance: PREGABALIN
     Indication: POST HERPETIC NEURALGIA
     Dosage: UNK
     Dates: start: 2015

REACTIONS (3)
  - Balance disorder [Unknown]
  - Cerebral disorder [Unknown]
  - Feeling abnormal [Unknown]
